FAERS Safety Report 8924304 (Version 1)
Quarter: 2012Q4

REPORT INFORMATION
  Report Type: 
  Country: FR (occurrence: FR)
  Receive Date: 20121126
  Receipt Date: 20121126
  Transmission Date: 20130627
  Serious: Yes (Other)
  Sender: FDA-Public Use
  Company Number: FR-VIIV HEALTHCARE LIMITED-B0844307A

PATIENT
  Sex: Female

DRUGS (5)
  1. KIVEXA [Suspect]
     Indication: HIV INFECTION CDC CATEGORY A2
     Route: 048
     Dates: start: 20120521, end: 20120822
  2. ISENTRESS [Concomitant]
     Indication: HIV INFECTION CDC CATEGORY A2
     Route: 048
     Dates: start: 20120723
  3. NORVIR [Concomitant]
     Dates: start: 20120521, end: 20120620
  4. REYATAZ [Concomitant]
     Dates: start: 20120521, end: 20120620
  5. VIRAMUNE [Concomitant]
     Dates: start: 20120620, end: 20120723

REACTIONS (3)
  - Diarrhoea [Recovered/Resolved]
  - Dyspepsia [Recovered/Resolved]
  - Weight decreased [Unknown]
